FAERS Safety Report 4752644-5 (Version None)
Quarter: 2005Q3

REPORT INFORMATION
  Report Type: 
  Country: None (occurrence: None)
  Receive Date: 20050823
  Receipt Date: 20050809
  Transmission Date: 20060218
  Serious: Yes (Hospitalization)
  Sender: FDA-Public Use
  Company Number: FR_050806923

PATIENT
  Age: 31 Year
  Sex: Female
  Weight: 85 kg

DRUGS (1)
  1. ZYPREXA [Suspect]
     Indication: SCHIZOPHRENIA
     Dosage: 10 MG/1 DAY
     Dates: start: 20031101, end: 20050501

REACTIONS (4)
  - ASTHENIA [None]
  - CYTOLYTIC HEPATITIS [None]
  - HEPATIC STEATOSIS [None]
  - HEPATOMEGALY [None]
